FAERS Safety Report 5596306-3 (Version None)
Quarter: 2008Q1

REPORT INFORMATION
  Report Type: 
  Country: None (occurrence: None)
  Receive Date: 20080118
  Receipt Date: 20080115
  Transmission Date: 20080703
  Serious: Yes (Hospitalization)
  Sender: FDA-Public Use
  Company Number: US-GENENTECH-252106

PATIENT
  Sex: Female
  Weight: 74.83 kg

DRUGS (10)
  1. RAPTIVA [Suspect]
     Indication: PUSTULAR PSORIASIS
     Dosage: 0.8 ML, 1/WEEK
     Route: 058
     Dates: end: 20071005
  2. COREG [Concomitant]
     Indication: DRUG USE FOR UNKNOWN INDICATION
  3. VOLTAREN [Concomitant]
     Indication: DRUG USE FOR UNKNOWN INDICATION
  4. DIGITEK [Concomitant]
     Indication: DRUG USE FOR UNKNOWN INDICATION
  5. SPIRONOLACTONE [Concomitant]
     Indication: DRUG USE FOR UNKNOWN INDICATION
  6. COQ-10 [Concomitant]
     Indication: DRUG USE FOR UNKNOWN INDICATION
  7. CALCIUM GLUCONATE [Concomitant]
     Indication: DRUG USE FOR UNKNOWN INDICATION
  8. PLAVIX [Concomitant]
     Indication: DRUG USE FOR UNKNOWN INDICATION
  9. DARVOCET [Concomitant]
     Indication: DRUG USE FOR UNKNOWN INDICATION
  10. AVAPRO [Concomitant]
     Indication: DRUG USE FOR UNKNOWN INDICATION

REACTIONS (3)
  - ACUTE RESPIRATORY DISTRESS SYNDROME [None]
  - MULTI-ORGAN FAILURE [None]
  - SEPTIC SHOCK [None]
